FAERS Safety Report 6782751-7 (Version None)
Quarter: 2010Q2

REPORT INFORMATION
  Report Type: 
  Country: None (occurrence: None)
  Receive Date: 20100616
  Receipt Date: 20100608
  Transmission Date: 20101027
  Serious: Yes (Other)
  Sender: FDA-Public Use
  Company Number: 2010AL003413

PATIENT
  Age: 46 Year
  Sex: Male

DRUGS (2)
  1. CLONAZEPAM [Suspect]
     Dosage: .5 MG;BID;UNKNOWN
     Dates: start: 20061101
  2. DIAZEPAM TAB [Suspect]

REACTIONS (14)
  - APHAGIA [None]
  - CONSTIPATION [None]
  - DECREASED APPETITE [None]
  - DRUG ADMINISTRATION ERROR [None]
  - FAECAL INCONTINENCE [None]
  - GASTROINTESTINAL MOTILITY DISORDER [None]
  - HYPERCHLORHYDRIA [None]
  - INFREQUENT BOWEL MOVEMENTS [None]
  - INSOMNIA [None]
  - MEDICATION ERROR [None]
  - MICTURITION DISORDER [None]
  - MUSCULOSKELETAL STIFFNESS [None]
  - PROCTALGIA [None]
  - VOMITING [None]
